FAERS Safety Report 7264524-4 (Version None)
Quarter: 2011Q1

REPORT INFORMATION
  Report Type: 
  Country: None (occurrence: None)
  Receive Date: 20110131
  Receipt Date: 20110125
  Transmission Date: 20110831
  Serious: No
  Sender: FDA-Public Use
  Company Number: US-PFIZER INC-2011018343

PATIENT
  Sex: Male

DRUGS (1)
  1. ALDACTONE [Suspect]
     Dosage: 100 MG, 2X/DAY
     Route: 048

REACTIONS (2)
  - CONDITION AGGRAVATED [None]
  - SINUS DISORDER [None]
